FAERS Safety Report 4370482-2 (Version None)
Quarter: 2004Q2

REPORT INFORMATION
  Report Type: 
  Country: None (occurrence: None)
  Receive Date: 20040527
  Receipt Date: 20040510
  Transmission Date: 20050107
  Serious: Yes (Other)
  Sender: FDA-Public Use
  Company Number: PHNR2004AU00926

PATIENT
  Age: 79 Year
  Sex: Female
  Weight: 55.0213 kg

DRUGS (7)
  1. VISUDYNE [Suspect]
     Indication: CHOROIDAL NEOVASCULARISATION
     Dosage: 30 ML DAILY IV
     Route: 042
     Dates: start: 20040422, end: 20040422
  2. OROXINE [Concomitant]
  3. LASIX [Concomitant]
  4. ZOCOR [Concomitant]
  5. CARTIA [Concomitant]
  6. NOVORAPID [Concomitant]
  7. PROTAPHANE [Concomitant]

REACTIONS (7)
  - BLOOD GLUCOSE DECREASED [None]
  - BRADYCARDIA [None]
  - CHEST PAIN [None]
  - COLD SWEAT [None]
  - HYPOTENSION [None]
  - LOSS OF CONSCIOUSNESS [None]
  - PALLOR [None]
